FAERS Safety Report 10929453 (Version 1)
Quarter: 2015Q1

REPORT INFORMATION
  Report Type: Spontaneous
  Country: US (occurrence: None)
  Receive Date: 20150317
  Receipt Date: 20150317
  Transmission Date: 20150721
  Serious: No
  Sender: FDA-Public Use
  Company Number: None

PATIENT
  Sex: Female

DRUGS (5)
  1. AMLODIPINE [Suspect]
     Active Substance: AMLODIPINE BESYLATE
     Indication: HYPERTENSION
     Dates: start: 20130615, end: 20130802
  2. ATORVASTATIN [Concomitant]
     Active Substance: ATORVASTATIN
  3. LUBIPROSTONE [Concomitant]
     Active Substance: LUBIPROSTONE
  4. EXEMESTANE. [Suspect]
     Active Substance: EXEMESTANE
     Indication: BREAST CANCER
     Dates: start: 20130606, end: 20130806
  5. LETROZOLE. [Concomitant]
     Active Substance: LETROZOLE

REACTIONS (6)
  - Drug-induced liver injury [None]
  - Alanine aminotransferase increased [None]
  - Fatigue [None]
  - Chromaturia [None]
  - Blood alkaline phosphatase increased [None]
  - Aspartate aminotransferase increased [None]

NARRATIVE: CASE EVENT DATE: 20130802
